FAERS Safety Report 13384687 (Version 1)
Quarter: 2017Q1

REPORT INFORMATION
  Report Type: Spontaneous
  Country: US (occurrence: US)
  Receive Date: 20170329
  Receipt Date: 20170329
  Transmission Date: 20170429
  Serious: No
  Sender: FDA-Public Use
  Company Number: None

PATIENT
  Age: 82 Year
  Sex: Male

DRUGS (1)
  1. DEXAMETHASONE 40 MG PO [Suspect]
     Active Substance: DEXAMETHASONE
     Indication: PLASMA CELL MYELOMA
     Dosage: DEXAMETHASONE 40 MG DAYS 1,8,15,22 BY MOUTH
     Route: 048

REACTIONS (2)
  - Memory impairment [None]
  - Disturbance in attention [None]
